FAERS Safety Report 16066263 (Version 1)
Quarter: 2019Q1

REPORT INFORMATION
  Report Type: Spontaneous
  Country: US (occurrence: US)
  Receive Date: 20190212
  Receipt Date: 20190212
  Transmission Date: 20190418
  Serious: No
  Sender: FDA-Public Use
  Company Number: None

PATIENT
  Age: 65 Year
  Sex: Female

DRUGS (1)
  1. ADEMPAS [Suspect]
     Active Substance: RIOCIGUAT
     Indication: PULMONARY HYPERTENSION
     Dosage: ?          OTHER DOSE:1.5MG;?
     Route: 048
     Dates: start: 20190110, end: 20190211

REACTIONS (4)
  - Hypotension [None]
  - Dyspepsia [None]
  - Constipation [None]
  - Dizziness [None]

NARRATIVE: CASE EVENT DATE: 20190207
